FAERS Safety Report 4882147-9 (Version None)
Quarter: 2006Q1

REPORT INFORMATION
  Report Type: 
  Country: None (occurrence: None)
  Receive Date: 20060117
  Receipt Date: 20050823
  Transmission Date: 20060701
  Serious: Yes (Hospitalization, Other)
  Sender: FDA-Public Use
  Company Number: US-MERCK-0508USA03884

PATIENT
  Age: 51 Year
  Sex: Female
  Weight: 91 kg

DRUGS (12)
  1. VIOXX [Suspect]
     Route: 048
     Dates: end: 20040106
  2. PAXIL [Concomitant]
     Route: 065
  3. CLONOPIN [Concomitant]
     Route: 065
  4. RISPERDAL [Concomitant]
     Route: 065
  5. VICODIN [Concomitant]
     Route: 065
  6. ASPIRIN [Concomitant]
     Route: 065
  7. PLAVIX [Concomitant]
     Route: 065
  8. NEXIUM [Concomitant]
     Route: 065
  9. ATENOLOL [Concomitant]
     Route: 065
  10. AMBIEN [Concomitant]
     Route: 065
  11. MECLIZINE [Concomitant]
     Route: 065
  12. LASIX [Concomitant]
     Route: 065

REACTIONS (15)
  - ANGINA UNSTABLE [None]
  - ASTHMA [None]
  - CARDIOVASCULAR DISORDER [None]
  - CHEST PAIN [None]
  - CHRONIC OBSTRUCTIVE PULMONARY DISEASE [None]
  - CORONARY ARTERY DISEASE [None]
  - DEPRESSION [None]
  - DYSLIPIDAEMIA [None]
  - DYSPNOEA [None]
  - EPISTAXIS [None]
  - GASTROOESOPHAGEAL REFLUX DISEASE [None]
  - HYPERTENSION [None]
  - MYOCARDIAL INFARCTION [None]
  - NAUSEA [None]
  - TACHYCARDIA [None]
